FAERS Safety Report 7557101-9 (Version None)
Quarter: 2011Q2

REPORT INFORMATION
  Report Type: 
  Country: None (occurrence: None)
  Receive Date: 20110616
  Receipt Date: 20110616
  Transmission Date: 20111010
  Serious: Yes (Other)
  Sender: FDA-Public Use
  Company Number: None

PATIENT
  Age: 58 Year
  Sex: Male
  Weight: 58.9676 kg

DRUGS (1)
  1. DICLOFENAC SODIUM [Suspect]
     Indication: ARTHRITIS
     Dosage: 1 DAILY PO
     Route: 048
     Dates: start: 20110603, end: 20110607

REACTIONS (5)
  - MUSCULAR WEAKNESS [None]
  - DIZZINESS [None]
  - NAUSEA [None]
  - TREMOR [None]
  - VOMITING [None]
